FAERS Safety Report 18384814 (Version 1)
Quarter: 2020Q4

REPORT INFORMATION
  Report Type: Spontaneous
  Country: US (occurrence: US)
  Receive Date: 20201015
  Receipt Date: 20201015
  Transmission Date: 20210114
  Serious: Yes (Other)
  Sender: FDA-Public Use
  Company Number: US-GW PHARMA-202010USGW03491

PATIENT

DRUGS (2)
  1. EPIDIOLEX [Suspect]
     Active Substance: CANNABIDIOL
     Dosage: 140 MILLIGRAM, TID
     Route: 048
     Dates: start: 2020
  2. EPIDIOLEX [Suspect]
     Active Substance: CANNABIDIOL
     Indication: EPILEPSY
     Dosage: 160 MILLIGRAM, BID
     Route: 048
     Dates: start: 2019, end: 2020

REACTIONS (3)
  - Seizure [Recovering/Resolving]
  - Somnolence [Recovering/Resolving]
  - Off label use [Unknown]
